FAERS Safety Report 9374664 (Version 2)
Quarter: 2013Q3

REPORT INFORMATION
  Report Type: Spontaneous
  Country: US (occurrence: US)
  Receive Date: 20130628
  Receipt Date: 20130701
  Transmission Date: 20140515
  Serious: Yes (Other)
  Sender: FDA-Public Use
  Company Number: CHPA2013US010379

PATIENT
  Age: 55 Year
  Sex: Female

DRUGS (2)
  1. VOLTAREN GEL [Suspect]
     Indication: RHEUMATOID ARTHRITIS
     Dosage: 3/4 OF DOSING CARD, UNK
     Route: 061
  2. VOLTAREN GEL [Suspect]
     Indication: OSTEOARTHRITIS

REACTIONS (5)
  - Cataract [Not Recovered/Not Resolved]
  - Pain [Recovering/Resolving]
  - Gait disturbance [Recovering/Resolving]
  - Off label use [Unknown]
  - Underdose [Unknown]
